FAERS Safety Report 8484865 (Version 4)
Quarter: 2020Q1

REPORT INFORMATION
  Report Type: Spontaneous
  Country: IT (occurrence: IT)
  Receive Date: 20120330
  Receipt Date: 20200208
  Transmission Date: 20200409
  Serious: Yes (Hospitalization)
  Sender: FDA-Public Use
  Company Number: IT-ROCHE-1051509

PATIENT
  Age: 57 Year
  Sex: Male

DRUGS (4)
  1. PEGASYS [Suspect]
     Active Substance: PEGINTERFERON ALFA-2A
     Indication: HEPATITIS C
     Route: 058
     Dates: start: 20110912, end: 20120315
  2. COPEGUS [Suspect]
     Active Substance: RIBAVIRIN
     Route: 048
  3. BOCEPREVIR [Interacting]
     Active Substance: BOCEPREVIR
     Indication: HEPATITIS C
     Route: 048
     Dates: start: 20111011, end: 20120315
  4. COPEGUS [Suspect]
     Active Substance: RIBAVIRIN
     Indication: HEPATITIS C
     Route: 048
     Dates: start: 20110912, end: 20120315

REACTIONS (3)
  - Drug interaction [Unknown]
  - Seizure [Recovered/Resolved]
  - Anaemia [Unknown]

NARRATIVE: CASE EVENT DATE: 20120315
